FAERS Safety Report 4977598-8 (Version None)
Quarter: 2006Q2

REPORT INFORMATION
  Report Type: 
  Country: None (occurrence: None)
  Receive Date: 20060420
  Receipt Date: 20060407
  Transmission Date: 20061013
  Serious: Yes (Hospitalization)
  Sender: FDA-Public Use
  Company Number: PHBS2006JP05523

PATIENT
  Age: 57 Year
  Sex: Female
  Weight: 25 kg

DRUGS (5)
  1. VOLTAREN [Suspect]
     Indication: RHEUMATOID ARTHRITIS
     Dosage: 37.5 MG/DAY
     Route: 048
     Dates: start: 20010101
  2. VOLTAREN [Suspect]
     Indication: RHEUMATOID ARTHRITIS
     Dosage: 25 MG/DAY
     Route: 054
     Dates: start: 20010101, end: 20030101
  3. PREDNISOLONE [Concomitant]
     Indication: RHEUMATOID ARTHRITIS
     Dosage: 5 MG/DAY
     Route: 048
     Dates: start: 19990101
  4. BUCILLAMINE [Concomitant]
     Indication: RHEUMATOID ARTHRITIS
     Route: 048
     Dates: start: 19990101
  5. SULINDAC [Concomitant]
     Indication: ANALGESIC EFFECT
     Dosage: 200 MG/DAY
     Route: 048

REACTIONS (3)
  - DISEASE RECURRENCE [None]
  - ILEAL STENOSIS [None]
  - INTESTINAL DIAPHRAGM DISEASE [None]
